FAERS Safety Report 4781122-2 (Version None)
Quarter: 2005Q3

REPORT INFORMATION
  Report Type: 
  Country: None (occurrence: None)
  Receive Date: 20050926
  Receipt Date: 20050913
  Transmission Date: 20060218
  Serious: Yes (Other)
  Sender: FDA-Public Use
  Company Number: 2005127983

PATIENT
  Age: 80 Year
  Sex: Female
  Weight: 63.5 kg

DRUGS (5)
  1. ZITHROMAX [Suspect]
     Indication: LOWER RESPIRATORY TRACT INFECTION
     Dosage: 500 MG (250 MG, BID INTERVAL: EVERY DAY), ORAL
     Route: 048
     Dates: start: 20050706, end: 20050708
  2. ATORVASTATIN CALCIUM [Suspect]
     Indication: BLOOD CHOLESTEROL
     Dosage: 20 MG (20 MG, DAILY INTERVAL: EVERY DAY),ORAL
     Route: 048
     Dates: start: 20050429
  3. SOTALOL HCL [Concomitant]
  4. BENDROFLUAZIDE (BENDROFLUMETHIAZIDE) [Concomitant]
  5. GAVISCON (SODIUM ALGINATE, SODIUM BICARBOANTE) [Concomitant]

REACTIONS (5)
  - CHEST PAIN [None]
  - DRUG INTERACTION [None]
  - DRUG TOXICITY [None]
  - MYALGIA [None]
  - MYOPATHY [None]
